FAERS Safety Report 20064878 (Version 3)
Quarter: 2021Q4

REPORT INFORMATION
  Report Type: Report from Study
  Country: CH (occurrence: CH)
  Receive Date: 20211112
  Receipt Date: 20211130
  Transmission Date: 20220304
  Serious: Yes (Hospitalization, Other)
  Sender: FDA-Public Use
  Company Number: CH-ABBVIE-21K-151-4155207-00

PATIENT
  Age: 71 Year
  Sex: Male

DRUGS (4)
  1. CARBIDOPA\LEVODOPA [Suspect]
     Active Substance: CARBIDOPA\LEVODOPA
     Indication: Parkinson^s disease
     Dosage: MD: 4.0 ML, CRD: 5.0 ML/H, CRN: 2.5 ML/H, ED: 1.5 ML 24H THERAPY
     Route: 050
     Dates: start: 20210607, end: 20210609
  2. CARBIDOPA\LEVODOPA [Suspect]
     Active Substance: CARBIDOPA\LEVODOPA
     Dosage: MD: 4.0 ML, CRD: 4.9 ML/H, CRN: 2.5 ML/H, ED: 1.5 ML 24H THERAPY
     Route: 050
     Dates: start: 20210609, end: 20210611
  3. CARBIDOPA\LEVODOPA [Suspect]
     Active Substance: CARBIDOPA\LEVODOPA
     Dosage: MD: 4.0 ML, CRD: 4.7 ML/H, CRN: 2.5 ML/H, ED: 1.5 ML 24H THERAPY
     Route: 050
     Dates: start: 20210611, end: 20210614
  4. CARBIDOPA\LEVODOPA [Suspect]
     Active Substance: CARBIDOPA\LEVODOPA
     Dosage: MD: 4.0 ML, CRD: 4.5 ML/H, CRN: 2.5 ML/H, ED: 1.5 ML 24H THERAPY
     Route: 050
     Dates: start: 20210614

REACTIONS (3)
  - Urinary tract infection [Not Recovered/Not Resolved]
  - General physical health deterioration [Recovered/Resolved]
  - Constipation [Not Recovered/Not Resolved]

NARRATIVE: CASE EVENT DATE: 20211105
